FAERS Safety Report 23989721 (Version 2)
Quarter: 2025Q2

REPORT INFORMATION
  Report Type: Spontaneous
  Country: US (occurrence: US)
  Receive Date: 20240619
  Receipt Date: 20250608
  Transmission Date: 20250717
  Serious: Yes (Death)
  Sender: COHERUS
  Company Number: US-COHERUS BIOSCIENCES, INC-2024-COH-US000471

PATIENT

DRUGS (2)
  1. UDENYCA [Suspect]
     Active Substance: PEGFILGRASTIM-CBQV
     Indication: Prophylaxis
     Route: 058
     Dates: start: 20240522
  2. NARCAN [Concomitant]
     Active Substance: NALOXONE HYDROCHLORIDE

REACTIONS (3)
  - Septic shock [Fatal]
  - Lung neoplasm malignant [Fatal]
  - Neutropenia [Fatal]

NARRATIVE: CASE EVENT DATE: 20240605
